FAERS Safety Report 17054790 (Version 3)
Quarter: 2019Q4

REPORT INFORMATION
  Report Type: Spontaneous
  Country: GR (occurrence: GR)
  Receive Date: 20191120
  Receipt Date: 20191207
  Transmission Date: 20200122
  Serious: Yes (Other)
  Sender: FDA-Public Use
  Company Number: GR-009507513-1910GRC012066

PATIENT
  Age: 33 Year
  Sex: Male

DRUGS (1)
  1. ELOCON [Suspect]
     Active Substance: MOMETASONE FUROATE
     Indication: HAIR GROWTH ABNORMAL
     Dosage: 1 APPLICATION, QPM
     Route: 061
     Dates: start: 201909, end: 2019

REACTIONS (3)
  - Product use in unapproved indication [Unknown]
  - Prescription drug used without a prescription [Unknown]
  - Skin discolouration [Recovering/Resolving]

NARRATIVE: CASE EVENT DATE: 2019
